FAERS Safety Report 15830822 (Version 1)
Quarter: 2019Q1

REPORT INFORMATION
  Report Type: Report from Study
  Country: None (occurrence: IT)
  Receive Date: 20190116
  Receipt Date: 20190116
  Transmission Date: 20190417
  Serious: Yes (Hospitalization)
  Sender: FDA-Public Use
  Company Number: IT-ABBVIE-19S-083-2619956-00

PATIENT
  Age: 77 Year
  Sex: Female

DRUGS (1)
  1. DUODOPA [Suspect]
     Active Substance: CARBIDOPA\LEVODOPA
     Indication: PARKINSON^S DISEASE
     Dosage: MD 6(+3), CR 1,3, ED 1,5
     Route: 050
     Dates: start: 20181220, end: 20190109

REACTIONS (1)
  - Chemical peritonitis [Unknown]

NARRATIVE: CASE EVENT DATE: 201901
